FAERS Safety Report 6660453-5 (Version None)
Quarter: 2010Q1

REPORT INFORMATION
  Report Type: 
  Country: None (occurrence: None)
  Receive Date: 20100331
  Receipt Date: 20100326
  Transmission Date: 20100710
  Serious: Yes (Other)
  Sender: FDA-Public Use
  Company Number: GB-SANOFI-AVENTIS-2010SA017892

PATIENT
  Age: 79 Year
  Sex: Male

DRUGS (11)
  1. AMARYL [Suspect]
     Indication: DIABETES MELLITUS
     Dates: start: 20070110
  2. METFORMIN (GLUCOPHAGE) [Suspect]
     Indication: DIABETES MELLITUS
     Dates: start: 20050928
  3. WARFARIN SODIUM [Concomitant]
     Indication: PULMONARY EMBOLISM
     Dates: start: 20100108
  4. ATORVASTATIN CALCIUM [Concomitant]
     Dates: start: 19980119
  5. FERROUS FUMARATE [Concomitant]
     Dates: start: 20090811
  6. BENDROFLUMETHIAZIDE [Concomitant]
     Indication: HYPERTENSION
     Dates: start: 20061206
  7. LISINOPRIL [Concomitant]
     Indication: HYPERTENSION
     Dates: start: 20100219
  8. OMEPRAZOLE [Concomitant]
     Dates: start: 20060904
  9. PARACETAMOL [Concomitant]
     Dates: start: 20091001
  10. CITALOPRAM HYDROBROMIDE [Concomitant]
     Indication: DEPRESSION
     Dates: start: 20090218
  11. BEZALIP-MONO [Concomitant]
     Dates: start: 20001023

REACTIONS (1)
  - COLON CANCER [None]
